FAERS Safety Report 12541848 (Version 2)
Quarter: 2016Q3

REPORT INFORMATION
  Report Type: Spontaneous
  Country: FR (occurrence: FR)
  Receive Date: 20160708
  Receipt Date: 20160810
  Transmission Date: 20161109
  Serious: Yes (Other)
  Sender: FDA-Public Use
  Company Number: FR-BEH-2016070957

PATIENT
  Sex: Female

DRUGS (5)
  1. HIZENTRA [Suspect]
     Active Substance: HUMAN IMMUNOGLOBULIN G
     Dosage: 6 G, TOT
     Route: 058
     Dates: start: 20160707, end: 20160707
  2. HIZENTRA [Suspect]
     Active Substance: HUMAN IMMUNOGLOBULIN G
     Dosage: UNK
     Route: 058
  3. HIZENTRA [Suspect]
     Active Substance: HUMAN IMMUNOGLOBULIN G
     Indication: HYPOGAMMAGLOBULINAEMIA
     Dosage: 6 G, TOT
     Route: 058
     Dates: start: 20160607, end: 20160607
  4. HIZENTRA [Suspect]
     Active Substance: HUMAN IMMUNOGLOBULIN G
     Indication: IMMUNODEFICIENCY
     Dosage: 6 G, TOT
     Route: 058
     Dates: start: 20160524, end: 20160524
  5. HIZENTRA [Suspect]
     Active Substance: HUMAN IMMUNOGLOBULIN G
     Dosage: UNK
     Route: 058

REACTIONS (7)
  - Infusion site rash [Recovered/Resolved]
  - Infusion site vesicles [Recovered/Resolved]
  - Infusion site necrosis [Not Recovered/Not Resolved]
  - Infusion site vesicles [Recovered/Resolved]
  - Infusion site rash [Recovered/Resolved]
  - Infusion site erythema [Recovered/Resolved]
  - Infusion site necrosis [Recovered/Resolved]

NARRATIVE: CASE EVENT DATE: 20160524
